FAERS Safety Report 9388041 (Version 1)
Quarter: 2013Q3

REPORT INFORMATION
  Report Type: Spontaneous
  Country: US (occurrence: US)
  Receive Date: 20130708
  Receipt Date: 20130708
  Transmission Date: 20140515
  Serious: Yes (Disabling, Other)
  Sender: FDA-Public Use
  Company Number: US-TEVA-416893USA

PATIENT
  Age: 69 Year
  Sex: Female

DRUGS (2)
  1. ROPINIROLE [Suspect]
     Indication: RESTLESS LEGS SYNDROME
     Dosage: 0.5MG PER NIGHT; FREQUENTLY SELF-MEDICATING WITH ADDITIONAL VARIABLE DOSES
     Route: 065
  2. CLONAZEPAM [Concomitant]
     Indication: PERIODIC LIMB MOVEMENT DISORDER
     Dosage: 0.25-0.5MG AT BEDTIME
     Route: 065

REACTIONS (13)
  - Drug withdrawal syndrome [Recovered/Resolved]
  - Impulse-control disorder [Recovered/Resolved]
  - Stereotypy [Recovered/Resolved]
  - Dopamine dysregulation syndrome [Recovered/Resolved]
  - Restless legs syndrome [Recovered/Resolved]
  - Condition aggravated [Recovered/Resolved]
  - Periodic limb movement disorder [Recovered/Resolved]
  - Condition aggravated [Recovered/Resolved]
  - Tremor [Recovered/Resolved]
  - Insomnia [Recovered/Resolved]
  - Drug tolerance [Recovered/Resolved]
  - Extra dose administered [Recovered/Resolved]
  - Self-medication [Recovered/Resolved]
